FAERS Safety Report 21757860 (Version 1)
Quarter: 2022Q4

REPORT INFORMATION
  Report Type: Other
  Country: US (occurrence: US)
  Receive Date: 20221221
  Receipt Date: 20221221
  Transmission Date: 20230112
  Serious: Yes (Life-Threatening)
  Sender: FDA-Public Use
  Company Number: US-BoehringerIngelheim-2021-BI-111642

PATIENT
  Age: 60 Year
  Sex: Male

DRUGS (1)
  1. ALTEPLASE [Suspect]
     Active Substance: ALTEPLASE
     Indication: Ischaemic stroke
     Dosage: (0.9 MG/KG) INFUSION OF 90 MG INTRAVENOUS ALTEPLASE
     Route: 042

REACTIONS (1)
  - Angioedema [Unknown]
